FAERS Safety Report 12157344 (Version 1)
Quarter: 2016Q1

REPORT INFORMATION
  Report Type: Spontaneous
  Country: US (occurrence: US)
  Receive Date: 20160308
  Receipt Date: 20160308
  Transmission Date: 20160526
  Serious: Yes (Other)
  Sender: FDA-Public Use
  Company Number: US-BEH-2016059367

PATIENT
  Age: 35 Year
  Sex: Female
  Weight: 85.2 kg

DRUGS (2)
  1. RHOPHYLAC [Suspect]
     Active Substance: HUMAN RHO(D) IMMUNE GLOBULIN
     Indication: KLEIHAUER-BETKE TEST
     Dosage: 10 VIALS
     Route: 042
  2. RHOPHYLAC [Suspect]
     Active Substance: HUMAN RHO(D) IMMUNE GLOBULIN
     Indication: KLEIHAUER-BETKE TEST
     Dosage: 10 VIALS
     Route: 042

REACTIONS (2)
  - Chills [Recovered/Resolved with Sequelae]
  - Blood pressure increased [Recovered/Resolved]

NARRATIVE: CASE EVENT DATE: 20160216
